FAERS Safety Report 13536964 (Version 1)
Quarter: 2017Q2

REPORT INFORMATION
  Report Type: Spontaneous
  Country: US (occurrence: US)
  Receive Date: 20170511
  Receipt Date: 20170511
  Transmission Date: 20170830
  Serious: No
  Sender: FDA-Public Use
  Company Number: US-BAYER-2017-087422

PATIENT
  Age: 45 Year
  Sex: Male

DRUGS (5)
  1. MOXIFLOXACIN ORAL [Suspect]
     Active Substance: MOXIFLOXACIN
     Indication: PNEUMONIA
     Dosage: UNK
  2. LINEZOLID. [Concomitant]
     Active Substance: LINEZOLID
     Indication: PNEUMONIA
     Dosage: UNK
  3. CLARITHROMYCIN. [Concomitant]
     Active Substance: CLARITHROMYCIN
     Indication: PNEUMONIA
     Dosage: UNK
  4. AMOXICILLIN AND CLAVULANATE POTASSIUM [Concomitant]
     Active Substance: AMOXICILLIN\CLAVULANATE POTASSIUM
     Indication: PNEUMONIA
  5. TRIMETOPRIM + SULFAMETOXAZOL [Concomitant]
     Active Substance: SULFAMETHOXAZOLE\TRIMETHOPRIM
     Indication: PNEUMONIA

REACTIONS (1)
  - Incorrect drug administration duration [None]
